FAERS Safety Report 9298338 (Version 1)
Quarter: 2013Q2

REPORT INFORMATION
  Report Type: Spontaneous
  Country: US (occurrence: None)
  Receive Date: 20130515
  Receipt Date: 20130515
  Transmission Date: 20140414
  Serious: Yes (Other)
  Sender: FDA-Public Use
  Company Number: ACO_33611_2012

PATIENT
  Age: 39 Year
  Sex: Female
  Weight: 92.1 kg

DRUGS (3)
  1. AMPYRA (DALFAMPRIDINE) TABLET, 10MG [Suspect]
     Indication: GAIT DISTURBANCE
     Route: 048
     Dates: start: 201204, end: 201304
  2. TYSABRI (NATALIZUMAB) [Concomitant]
  3. ANTIDEPRESSANTS [Concomitant]

REACTIONS (4)
  - Muscle spasms [None]
  - Somnolence [None]
  - Drug dose omission [None]
  - Extraocular muscle disorder [None]
